FAERS Safety Report 25304069 (Version 1)
Quarter: 2025Q2

REPORT INFORMATION
  Report Type: Spontaneous
  Country: BR (occurrence: BR)
  Receive Date: 20250513
  Receipt Date: 20250513
  Transmission Date: 20250717
  Serious: Yes (Hospitalization)
  Sender: EMD SERONO INC
  Company Number: BR-Merck Healthcare KGaA-9405654

PATIENT
  Sex: Female

DRUGS (2)
  1. EUTHYROX [Suspect]
     Active Substance: LEVOTHYROXINE SODIUM
     Indication: Post procedural hypothyroidism
     Dosage: FREQUENCY TEXT: IN THE MORNING, MORE THAN 14 YEARS AGO
     Dates: start: 20101001
  2. VITAMIN D3 [Concomitant]
     Active Substance: CHOLECALCIFEROL
     Indication: Product used for unknown indication

REACTIONS (11)
  - Cerebrovascular accident [Recovered/Resolved with Sequelae]
  - Varicose vein [Recovered/Resolved]
  - Embolism [Not Recovered/Not Resolved]
  - Fatigue [Unknown]
  - Fall [Unknown]
  - Memory impairment [Not Recovered/Not Resolved]
  - Dysarthria [Not Recovered/Not Resolved]
  - Tooth injury [Unknown]
  - Aphasia [Not Recovered/Not Resolved]
  - Lip injury [Unknown]
  - Cognitive disorder [Unknown]
